FAERS Safety Report 10283263 (Version 1)
Quarter: 2014Q3

REPORT INFORMATION
  Report Type: Spontaneous
  Country: SE (occurrence: SE)
  Receive Date: 20140708
  Receipt Date: 20140708
  Transmission Date: 20150326
  Serious: Yes (Hospitalization)
  Sender: FDA-Public Use
  Company Number: SE-ROCHE-1430899

PATIENT
  Age: 58 Year
  Sex: Male

DRUGS (12)
  1. TROMBYL [Concomitant]
     Active Substance: ASPIRIN
     Route: 065
  2. ATORVASTATIN [Concomitant]
     Active Substance: ATORVASTATIN
     Route: 065
  3. HUMULIN N [Concomitant]
     Active Substance: INSULIN HUMAN
     Route: 065
  4. DALACIN [Concomitant]
     Active Substance: CLINDAMYCIN\CLINDAMYCIN PHOSPHATE
     Route: 065
  5. ALVEDON [Concomitant]
     Active Substance: ACETAMINOPHEN
     Route: 065
  6. LUCENTIS [Suspect]
     Active Substance: RANIBIZUMAB
     Dosage: FOURTH INJECTION IN RIGHT EYE AND SEVENTH INJECTION IN LEFT EYE
     Route: 050
     Dates: start: 20140129, end: 20140129
  7. LUCENTIS [Suspect]
     Active Substance: RANIBIZUMAB
     Dosage: LUCENTIS INJECTION NUMBER 5 IN RIGHT EYE 0.05 ML AND INJECTION NUMBER 8 IN LEFT EYE 0.05 ML
     Route: 047
     Dates: start: 20140226, end: 20140226
  8. NITROLINGUAL [Concomitant]
     Active Substance: NITROGLYCERIN
     Route: 065
  9. LUCENTIS [Suspect]
     Active Substance: RANIBIZUMAB
     Indication: PRODUCT USED FOR UNKNOWN INDICATION
     Route: 050
     Dates: end: 20140326
  10. LUCENTIS [Suspect]
     Active Substance: RANIBIZUMAB
     Dosage: LUCENTIS INJECTION NUMBER 6 IN RIGHT EYE 0.05 ML AND INJECTION NUMBER 9 IN LEFT EYE
     Route: 047
     Dates: start: 20140326, end: 20140326
  11. OMEPRAZOLE. [Concomitant]
     Active Substance: OMEPRAZOLE
     Route: 065
  12. CLOPIDOGREL [Concomitant]
     Active Substance: CLOPIDOGREL BISULFATE
     Route: 065

REACTIONS (1)
  - Myocardial infarction [Recovered/Resolved with Sequelae]

NARRATIVE: CASE EVENT DATE: 20140417
